FAERS Safety Report 4398151-3 (Version None)
Quarter: 2004Q3

REPORT INFORMATION
  Report Type: 
  Country: None (occurrence: None)
  Receive Date: 20040714
  Receipt Date: 20040714
  Transmission Date: 20050211
  Serious: Yes (Death)
  Sender: FDA-Public Use
  Company Number: None

PATIENT
  Age: 23 Year
  Sex: Male
  Weight: 58.9676 kg

DRUGS (1)
  1. OXYCODONE HCL [Suspect]

REACTIONS (2)
  - DRUG ABUSER [None]
  - SELF-MEDICATION [None]
